FAERS Safety Report 8978234 (Version 1)
Quarter: 2012Q4

REPORT INFORMATION
  Report Type: 
  Country: NL (occurrence: NL)
  Receive Date: 20121221
  Receipt Date: 20121221
  Transmission Date: 20130627
  Serious: Yes (Death)
  Sender: FDA-Public Use
  Company Number: NL-PFIZER INC-2012321019

PATIENT
  Sex: Male
  Weight: 75 kg

DRUGS (7)
  1. AZITHROMYCIN [Suspect]
     Indication: RESPIRATORY INFECTION
     Dosage: 500 mg, 1x/day
     Dates: start: 20121010, end: 20121014
  2. INTERFERON ALFA-2A [Suspect]
     Indication: MULTIPLE MYELOMA
     Dosage: 1 DD weekly, later 3 million IE daily
     Dates: start: 201205
  3. PANTOZOL [Concomitant]
     Dosage: 40 mg, UNK
     Dates: start: 200808
  4. FOLIC ACID [Concomitant]
     Dosage: 5 mg, UNK
     Dates: start: 2011
  5. PENTAMIDINE [Concomitant]
     Dosage: 300 mg, UNK
     Dates: start: 201205
  6. PAMIDRONIC ACID [Concomitant]
     Dosage: 30 mg, 1 time per 6 weeks
     Dates: start: 2011
  7. LENALIDOMIDE [Concomitant]
     Dosage: 25 mg, UNK
     Dates: start: 201201

REACTIONS (1)
  - Acute hepatic failure [Fatal]
